FAERS Safety Report 6222514-4 (Version None)
Quarter: 2009Q2

REPORT INFORMATION
  Report Type: 
  Country: None (occurrence: None)
  Receive Date: 20090611
  Receipt Date: 20090529
  Transmission Date: 20091009
  Serious: Yes (Other)
  Sender: FDA-Public Use
  Company Number: JP-NAPPMUNDI-MAG-2009-0000790

PATIENT

DRUGS (6)
  1. OXYCODONE HCL PR TABLET 5 MG [Suspect]
     Indication: CANCER PAIN
     Dosage: 5 MG, BID
     Route: 048
     Dates: start: 20090508, end: 20090509
  2. ARTIST [Suspect]
     Indication: VENTRICULAR EXTRASYSTOLES
     Dosage: 10 MG, DAILY
     Route: 048
     Dates: start: 20090101, end: 20090509
  3. ASPIRIN [Concomitant]
     Indication: CEREBRAL INFARCTION
     Dosage: 100 MG, DAILY
     Route: 048
  4. OLMETEC [Concomitant]
     Indication: HYPERTENSION
     Dosage: 20 MG, DAILY
     Route: 048
  5. MEILAX [Concomitant]
     Indication: ANXIETY DISORDER
     Dosage: 1 MG, DAILY
     Route: 048
  6. NOVAMIN                            /00013301/ [Concomitant]
     Indication: PROPHYLAXIS OF NAUSEA AND VOMITING
     Dosage: 5 MG, TID
     Route: 048
     Dates: start: 20090508, end: 20090509

REACTIONS (1)
  - SINUS BRADYCARDIA [None]
